FAERS Safety Report 17095035 (Version 1)
Quarter: 2019Q4

REPORT INFORMATION
  Report Type: Spontaneous
  Country: SE (occurrence: SE)
  Receive Date: 20191130
  Receipt Date: 20191130
  Transmission Date: 20200122
  Serious: Yes (Hospitalization)
  Sender: FDA-Public Use
  Company Number: SE-ACCORD-163077

PATIENT

DRUGS (3)
  1. VALDOXAN [Suspect]
     Active Substance: AGOMELATINE
     Dosage: MAYBE 30 PIECES
     Route: 048
     Dates: start: 20180415, end: 20180415
  2. QUETIAPINE. [Suspect]
     Active Substance: QUETIAPINE
     Dosage: 25 MG 45 PIECES APPROX
     Route: 048
     Dates: start: 20180415, end: 20180415
  3. LERGIGAN (PROMETHAZINE HYDROCHLORIDE) [Suspect]
     Active Substance: PROMETHAZINE HYDROCHLORIDE
     Dosage: LERGIGAN BOTTLE 25 MG 100 - BOTTLE EMPTY THOUGH LOOKS OLD
     Route: 048
     Dates: start: 20180415, end: 20180415

REACTIONS (2)
  - Intentional self-injury [Unknown]
  - Intentional overdose [Unknown]

NARRATIVE: CASE EVENT DATE: 20180415
